FAERS Safety Report 23525403 (Version 1)
Quarter: 2024Q1

REPORT INFORMATION
  Report Type: Spontaneous
  Country: US (occurrence: US)
  Receive Date: 20240215
  Receipt Date: 20240215
  Transmission Date: 20240410
  Serious: No
  Sender: FDA-Public Use
  Company Number: US-HIKMA PHARMACEUTICALS USA INC.-US-H14001-23-63122

PATIENT
  Sex: Female

DRUGS (1)
  1. FLUTICASONE PROPIONATE [Suspect]
     Active Substance: FLUTICASONE PROPIONATE
     Indication: Sinusitis
     Dosage: UNK, BID, ONCE IN THE MORNING, ONCE IN THE EVENING
     Route: 045

REACTIONS (3)
  - Nasal dryness [Recovered/Resolved]
  - Retching [Recovered/Resolved]
  - Dry mouth [Recovered/Resolved]
